FAERS Safety Report 8760598 (Version 1)
Quarter: 2012Q4

REPORT INFORMATION
  Report Type: Spontaneous
  Country: US (occurrence: None)
  Receive Date: 20120828
  Receipt Date: 20120828
  Transmission Date: 20130627
  Serious: Yes (Other)
  Sender: FDA-Public Use
  Company Number: None

PATIENT
  Age: 60 Year
  Sex: Male
  Weight: 129.28 kg

DRUGS (2)
  1. PAROXETINE [Suspect]
     Route: 048
     Dates: start: 19971015, end: 20120630
  2. PAROXETINE [Suspect]
     Route: 048
     Dates: start: 20120701, end: 20120826

REACTIONS (3)
  - Product quality issue [None]
  - Affect lability [None]
  - Affective disorder [None]
